FAERS Safety Report 6755023-4 (Version None)
Quarter: 2010Q2

REPORT INFORMATION
  Report Type: 
  Country: None (occurrence: None)
  Receive Date: 20100603
  Receipt Date: 20100524
  Transmission Date: 20101027
  Serious: Yes (Death, Life-Threatening, Hospitalization, Other)
  Sender: FDA-Public Use
  Company Number: JP-ABBOTT-10P-087-0631516-00

PATIENT
  Sex: Female

DRUGS (5)
  1. HUMIRA [Suspect]
     Indication: RHEUMATOID ARTHRITIS
     Route: 058
     Dates: start: 20090625
  2. METHOTREXATE [Interacting]
     Indication: DRUG USE FOR UNKNOWN INDICATION
     Dates: start: 20090101
  3. STEROID [Concomitant]
     Indication: DRUG USE FOR UNKNOWN INDICATION
  4. SODIUM AUROTHIOMALATE [Concomitant]
     Indication: DRUG USE FOR UNKNOWN INDICATION
     Route: 050
     Dates: start: 20060101
  5. PREDNISOLONE [Concomitant]
     Indication: DRUG USE FOR UNKNOWN INDICATION
     Route: 048
     Dates: start: 20060101

REACTIONS (15)
  - CANDIDIASIS [None]
  - DEPRESSED LEVEL OF CONSCIOUSNESS [None]
  - DRUG INTERACTION [None]
  - HYPERCAPNIA [None]
  - IMMUNODEFICIENCY [None]
  - INFECTION [None]
  - METABOLIC ALKALOSIS [None]
  - MOUTH BREATHING [None]
  - PNEUMOCYSTIS JIROVECI PNEUMONIA [None]
  - PNEUMOCYSTIS TEST POSITIVE [None]
  - RENAL IMPAIRMENT [None]
  - RESPIRATORY DISORDER [None]
  - RESPIRATORY FAILURE [None]
  - RHEUMATOID LUNG [None]
  - RHINORRHOEA [None]
